FAERS Safety Report 11690829 (Version 4)
Quarter: 2016Q3

REPORT INFORMATION
  Report Type: Spontaneous
  Country: US (occurrence: US)
  Receive Date: 20151102
  Receipt Date: 20160909
  Transmission Date: 20161109
  Serious: Yes (Other)
  Sender: FDA-Public Use
  Company Number: US-TEVA-604818USA

PATIENT
  Age: 38 Year
  Sex: Female

DRUGS (9)
  1. TOVIAZ [Concomitant]
     Active Substance: FESOTERODINE FUMARATE
  2. TOPAMAX [Concomitant]
     Active Substance: TOPIRAMATE
  3. SINEMET [Concomitant]
     Active Substance: CARBIDOPA\LEVODOPA
  4. ZYRTEC [Concomitant]
     Active Substance: CETIRIZINE HYDROCHLORIDE
  5. ZECUITY [Suspect]
     Active Substance: SUMATRIPTAN SUCCINATE
     Indication: MIGRAINE
     Route: 062
     Dates: start: 20151026, end: 20151026
  6. BENTYL [Concomitant]
     Active Substance: DICYCLOMINE HYDROCHLORIDE
  7. AYGESTIN [Concomitant]
     Active Substance: NORETHINDRONE ACETATE
  8. MIRALAX [Concomitant]
     Active Substance: POLYETHYLENE GLYCOL 3350
  9. DEXALANT [Concomitant]

REACTIONS (17)
  - Drug effect decreased [Unknown]
  - Application site irritation [Recovered/Resolved]
  - Drug ineffective [Unknown]
  - Application site inflammation [Recovered/Resolved]
  - Application site vesicles [Recovered/Resolved]
  - Application site papules [Recovered/Resolved]
  - Burns second degree [Recovered/Resolved]
  - Application site pain [Recovered/Resolved]
  - Application site burn [Recovered/Resolved]
  - Sunburn [Recovered/Resolved]
  - Underdose [Unknown]
  - Application site pruritus [Recovered/Resolved]
  - Application site discomfort [Recovered/Resolved]
  - Application site dermatitis [Recovered/Resolved]
  - Application site erythema [Recovered/Resolved]
  - Application site urticaria [Recovered/Resolved]
  - Application site pain [Recovered/Resolved]

NARRATIVE: CASE EVENT DATE: 20151026
